FAERS Safety Report 12144193 (Version 1)
Quarter: 2016Q1

REPORT INFORMATION
  Report Type: Spontaneous
  Country: US (occurrence: None)
  Receive Date: 20160303
  Receipt Date: 20160303
  Transmission Date: 20160526
  Serious: No
  Sender: FDA-Public Use
  Company Number: None

PATIENT
  Age: 53 Year
  Sex: Male
  Weight: 81.65 kg

DRUGS (1)
  1. OMEPRAZOLE 20 MG MADE IN ISRAEL [Suspect]
     Active Substance: OMEPRAZOLE
     Indication: DYSPEPSIA
     Dosage: OCCASIONALLY FOR 1 TO 2 DAYS

REACTIONS (5)
  - Incorrect dose administered [None]
  - Wrong technique in product usage process [None]
  - Disease recurrence [None]
  - General symptom [None]
  - Product substitution issue [None]

NARRATIVE: CASE EVENT DATE: 20160302
